FAERS Safety Report 5456828-2 (Version None)
Quarter: 2007Q3

REPORT INFORMATION
  Report Type: 
  Country: None (occurrence: None)
  Receive Date: 20070918
  Receipt Date: 20070228
  Transmission Date: 20080115
  Serious: Yes (Other)
  Sender: FDA-Public Use
  Company Number: US-ASTRAZENECA-2006UW26165

PATIENT
  Sex: Female
  Weight: 72.7 kg

DRUGS (2)
  1. SEROQUEL [Suspect]
     Indication: BIPOLAR DISORDER
     Route: 048
     Dates: end: 20030101
  2. RISPERDAL [Concomitant]

REACTIONS (6)
  - CELLULITIS [None]
  - CLAVICLE FRACTURE [None]
  - DIABETIC COMA [None]
  - HYPERGLYCAEMIA [None]
  - KIDNEY INFECTION [None]
  - TYPE 1 DIABETES MELLITUS [None]
